FAERS Safety Report 5624507-4 (Version None)
Quarter: 2008Q1

REPORT INFORMATION
  Report Type: 
  Country: None (occurrence: None)
  Receive Date: 20080213
  Receipt Date: 20080205
  Transmission Date: 20080703
  Serious: Yes (Disabling)
  Sender: FDA-Public Use
  Company Number: US-BAYER-200713436BWH

PATIENT
  Age: 76 Year
  Sex: Male
  Weight: 84 kg

DRUGS (2)
  1. CIPRO [Suspect]
     Indication: PROSTATITIS
     Dosage: TOTAL DAILY DOSE: 1000 MG
     Route: 048
  2. RYTHMOL [Concomitant]
     Dosage: TOTAL DAILY DOSE: 850 MG

REACTIONS (2)
  - DEAFNESS [None]
  - TINNITUS [None]
